FAERS Safety Report 13329523 (Version 1)
Quarter: 2017Q1

REPORT INFORMATION
  Report Type: Other
  Country: JP (occurrence: JP)
  Receive Date: 20170313
  Receipt Date: 20170313
  Transmission Date: 20170428
  Serious: Yes (Hospitalization)
  Sender: FDA-Public Use
  Company Number: JP-ACTELION-A-CH2017-150562

PATIENT
  Age: 34 Year
  Sex: Female

DRUGS (3)
  1. PREDNISOLONE. [Concomitant]
     Active Substance: PREDNISOLONE
  2. BERAPROST [Concomitant]
     Active Substance: BERAPROST
     Dosage: 120 ?G, QD
  3. BOSENTAN. [Suspect]
     Active Substance: BOSENTAN
     Indication: PULMONARY ARTERIAL HYPERTENSION
     Dosage: 250 MG, QD
     Route: 048

REACTIONS (11)
  - Dyspnoea [Unknown]
  - Hypoxia [Unknown]
  - Antinuclear antibody positive [Unknown]
  - Therapeutic response decreased [Unknown]
  - Oxygen saturation decreased [Unknown]
  - Generalised oedema [Unknown]
  - Hypotension [Unknown]
  - Jugular vein distension [Unknown]
  - Cardiomegaly [Unknown]
  - Tachycardia [Unknown]
  - Brain natriuretic peptide increased [Unknown]

NARRATIVE: CASE EVENT DATE: 201401
